FAERS Safety Report 7312617-5 (Version None)
Quarter: 2011Q1

REPORT INFORMATION
  Report Type: 
  Country: None (occurrence: None)
  Receive Date: 20110214
  Receipt Date: 20110131
  Transmission Date: 20110831
  Serious: Yes (Death, Life-Threatening, Other)
  Sender: FDA-Public Use
  Company Number: DSU-2011-00761

PATIENT
  Age: 52 Year
  Sex: Male

DRUGS (4)
  1. BENICAR HCT [Suspect]
     Indication: HYPERTENSION
     Dosage: 40/12.5 MG,PER ORAL
     Route: 048
     Dates: start: 20090901
  2. BABY ASPIRIN (ACETYLSALICYLIC ACID) (ACETYLSALICYLIC ACID) [Concomitant]
  3. FLINTSTONES MULTIVITAMINS (VITAMINS NOS) (TABLET) (VITAMINS NOS) [Concomitant]
  4. CRESTOR [Suspect]
     Indication: BLOOD CHOLESTEROL INCREASED
     Dosage: PER ORAL
     Route: 048

REACTIONS (13)
  - DEHYDRATION [None]
  - DRUG INTERACTION [None]
  - FALL [None]
  - MUSCLE SPASMS [None]
  - FATIGUE [None]
  - CARDIAC ARREST [None]
  - VENTRICULAR HYPERTROPHY [None]
  - DYSPNOEA [None]
  - HYPERHIDROSIS [None]
  - SYNCOPE [None]
  - SINUS BRADYCARDIA [None]
  - ARRHYTHMIA [None]
  - ARTERIOSCLEROSIS CORONARY ARTERY [None]
